FAERS Safety Report 6986669-6 (Version None)
Quarter: 2010Q3

REPORT INFORMATION
  Report Type: 
  Country: None (occurrence: None)
  Receive Date: 20100915
  Receipt Date: 20090827
  Transmission Date: 20110219
  Serious: No
  Sender: FDA-Public Use
  Company Number: US-WYE-H10333909

PATIENT
  Sex: Male
  Weight: 69.01 kg

DRUGS (12)
  1. PRISTIQ [Suspect]
     Indication: DEPRESSION
     Route: 048
     Dates: start: 20090625, end: 20090101
  2. PRISTIQ [Suspect]
     Indication: FIBROMYALGIA
     Route: 048
     Dates: start: 20090701, end: 20090701
  3. PRISTIQ [Suspect]
     Route: 048
     Dates: start: 20090701, end: 20090724
  4. LOPRESSOR [Concomitant]
  5. GABAPENTIN [Concomitant]
  6. FELODIPINE [Concomitant]
  7. PRILOSEC [Concomitant]
  8. AMBIEN [Concomitant]
  9. PERCOCET [Concomitant]
  10. KLONOPIN [Concomitant]
  11. LISINOPRIL [Concomitant]
  12. SINEMET [Concomitant]

REACTIONS (5)
  - DRUG WITHDRAWAL SYNDROME [None]
  - FLUSHING [None]
  - HYPERHIDROSIS [None]
  - MUSCLE SPASMS [None]
  - PAIN IN EXTREMITY [None]
